FAERS Safety Report 7737798-0 (Version None)
Quarter: 2011Q3

REPORT INFORMATION
  Report Type: 
  Country: None (occurrence: None)
  Receive Date: 20110908
  Receipt Date: 20110902
  Transmission Date: 20111222
  Serious: Yes (Hospitalization)
  Sender: FDA-Public Use
  Company Number: PHHY2011FR78664

PATIENT
  Sex: Male

DRUGS (1)
  1. AMOXICILLIN [Suspect]
     Dosage: 1 G, QD
     Route: 048
     Dates: start: 20110811, end: 20110811

REACTIONS (4)
  - URTICARIA [None]
  - PRURITUS [None]
  - MALAISE [None]
  - GENERALISED ERYTHEMA [None]
